FAERS Safety Report 23908717 (Version 1)
Quarter: 2024Q2

REPORT INFORMATION
  Report Type: Spontaneous
  Country: US (occurrence: US)
  Receive Date: 20240528
  Receipt Date: 20240528
  Transmission Date: 20240716
  Serious: Yes (Other)
  Sender: FDA-Public Use
  Company Number: US-UCBSA-2024024904

PATIENT
  Sex: Female
  Weight: 69.4 kg

DRUGS (6)
  1. KEPPRA [Suspect]
     Active Substance: LEVETIRACETAM
     Indication: Seizure
     Dosage: 500 MILLIGRAM, 2X/DAY (BID)
     Route: 048
  2. BACLOFEN [Suspect]
     Active Substance: BACLOFEN
     Indication: Product used for unknown indication
     Dosage: UNK
  3. DECADRON [Concomitant]
     Active Substance: DEXAMETHASONE
     Indication: Product used for unknown indication
     Dosage: TAKE 1 TABLET (1 MG TOTAL) BY MOUTH DAILY WITH BREAKFAST
     Route: 048
     Dates: start: 20240401
  4. NORVASC [Concomitant]
     Active Substance: AMLODIPINE BESYLATE
     Indication: Product used for unknown indication
     Dosage: TAKE 1 TABLET (10 MG TOTAL) BY MOUTH NIGHTLY
     Route: 048
  5. CELEBREX [Concomitant]
     Active Substance: CELECOXIB
     Indication: Product used for unknown indication
     Dosage: TAKE 1 CAPSULE (200 MG TOTAL) BY MOUTH TWO TIMES A DAY
     Route: 048
  6. SUMATRIPTAN SUCCINATE [Concomitant]
     Active Substance: SUMATRIPTAN SUCCINATE
     Indication: Product used for unknown indication
     Dosage: ONCE AS NEEDED
     Dates: start: 20221229

REACTIONS (7)
  - Hemiparesis [Unknown]
  - Seizure [Unknown]
  - Feeling abnormal [Unknown]
  - Gait inability [Unknown]
  - Vision blurred [Unknown]
  - Fatigue [Unknown]
  - Somnolence [Unknown]
